FAERS Safety Report 5100606-0 (Version None)
Quarter: 2006Q3

REPORT INFORMATION
  Report Type: 
  Country: None (occurrence: None)
  Receive Date: 20060907
  Receipt Date: 20060907
  Transmission Date: 20061208
  Serious: Yes (Hospitalization)
  Sender: FDA-Public Use
  Company Number: None

PATIENT
  Age: 58 Year
  Sex: Male
  Weight: 106.6 kg

DRUGS (6)
  1. IBUPROFEN [Suspect]
     Dosage: 800 MG M Q8H , BY MOUTH
     Dates: start: 20060518, end: 20060826
  2. NAPROXEN [Suspect]
     Dosage: 500 NG , BID, BY MOUTH (PO)
     Route: 048
     Dates: start: 20050728, end: 20060526
  3. GLIPIZIDE [Concomitant]
  4. RISPERIDONE [Concomitant]
  5. NITROGLYCERIN [Concomitant]
  6. NICOTINE [Concomitant]

REACTIONS (3)
  - ABDOMINAL DISCOMFORT [None]
  - DIZZINESS [None]
  - HYPOTENSION [None]
